FAERS Safety Report 8282317-6 (Version None)
Quarter: 2012Q2

REPORT INFORMATION
  Report Type: 
  Country: None (occurrence: None)
  Receive Date: 20120413
  Receipt Date: 20120413
  Transmission Date: 20120825
  Serious: Yes (Hospitalization)
  Sender: FDA-Public Use
  Company Number: None

PATIENT
  Age: 44 Year
  Sex: Male
  Weight: 73.18 kg

DRUGS (2)
  1. HALOPERIDOL [Suspect]
     Indication: SCHIZOPHRENIA, PARANOID TYPE
     Dosage: 5MG
     Route: 048
     Dates: start: 20120321, end: 20120405
  2. HALOPERIDOL DECANOATE [Concomitant]
     Indication: SCHIZOPHRENIA, PARANOID TYPE
     Dosage: 100MG
     Route: 030
     Dates: start: 20120403, end: 20120406

REACTIONS (4)
  - BACTERAEMIA [None]
  - LEUKOCYTOSIS [None]
  - RHABDOMYOLYSIS [None]
  - URINARY TRACT INFECTION [None]
